FAERS Safety Report 8105557-5 (Version None)
Quarter: 2012Q1

REPORT INFORMATION
  Report Type: 
  Country: None (occurrence: None)
  Receive Date: 20120201
  Receipt Date: 20120126
  Transmission Date: 20120608
  Serious: Yes (Hospitalization)
  Sender: FDA-Public Use
  Company Number: GB-ROCHE-1031697

PATIENT
  Sex: Female

DRUGS (5)
  1. FOLIC ACID [Concomitant]
     Route: 048
     Dates: start: 20070101
  2. RITUXIMAB [Suspect]
     Indication: PRODUCT USED FOR UNKNOWN INDICATION
     Route: 042
     Dates: start: 20120105
  3. CELEBREX [Concomitant]
  4. AMITRIPTYLINE HCL [Concomitant]
  5. METHOTREXATE [Concomitant]
     Indication: RHEUMATOID ARTHRITIS
     Route: 058
     Dates: start: 20070101

REACTIONS (2)
  - CONDITION AGGRAVATED [None]
  - ASTHMA [None]
